FAERS Safety Report 10617877 (Version 3)
Quarter: 2016Q3

REPORT INFORMATION
  Report Type: Report from Study
  Country: BR (occurrence: BR)
  Receive Date: 20141201
  Receipt Date: 20160906
  Transmission Date: 20161109
  Serious: Yes (Hospitalization)
  Sender: FDA-Public Use
  Company Number: PHHY2014BR154873

PATIENT
  Age: 37 Year
  Sex: Female
  Weight: 51 kg

DRUGS (5)
  1. SIMVASTATIN. [Concomitant]
     Active Substance: SIMVASTATIN
     Indication: LIPIDS ABNORMAL
     Dosage: 2 DF, QD
     Route: 065
  2. EXJADE [Suspect]
     Active Substance: DEFERASIROX
     Indication: SICKLE CELL ANAEMIA WITH CRISIS
     Dosage: 20 MG/KG, QD (2 DF OF 500 MG)
     Route: 048
     Dates: start: 2013, end: 201312
  3. AAS [Concomitant]
     Active Substance: ASPIRIN
     Indication: BLOOD DISORDER
     Dosage: 1 DF, QD
     Route: 048
  4. HYDREA [Concomitant]
     Active Substance: HYDROXYUREA
     Indication: PRODUCT USED FOR UNKNOWN INDICATION
     Route: 065
  5. FOLIC ACID. [Concomitant]
     Active Substance: FOLIC ACID
     Indication: PRODUCT USED FOR UNKNOWN INDICATION
     Route: 065

REACTIONS (5)
  - Serum ferritin increased [Unknown]
  - Abasia [Not Recovered/Not Resolved]
  - Malaise [Unknown]
  - Cerebrovascular accident [Recovered/Resolved]
  - Monoplegia [Not Recovered/Not Resolved]

NARRATIVE: CASE EVENT DATE: 20140909
